FAERS Safety Report 6170855-1 (Version None)
Quarter: 2009Q2

REPORT INFORMATION
  Report Type: 
  Country: None (occurrence: None)
  Receive Date: 20090427
  Receipt Date: 20090409
  Transmission Date: 20091009
  Serious: Yes (Death)
  Sender: FDA-Public Use
  Company Number: ADE# 09-061DPR

PATIENT
  Age: 78 Year
  Sex: Male

DRUGS (4)
  1. DIGOXIN [Suspect]
     Indication: CARDIAC FAILURE
     Dosage: ONCE A DAY
     Dates: start: 20040401, end: 20081127
  2. CALCIUM [Concomitant]
  3. MAGNESIUM SULFATE [Concomitant]
  4. VITAMINS [Concomitant]

REACTIONS (3)
  - DYSSTASIA [None]
  - FALL [None]
  - LYMPHOMA [None]
